FAERS Safety Report 21418389 (Version 1)
Quarter: 2022Q4

REPORT INFORMATION
  Report Type: Spontaneous
  Country: US (occurrence: None)
  Receive Date: 20221005
  Receipt Date: 20221005
  Transmission Date: 20230113
  Serious: No
  Sender: FDA-Public Use
  Company Number: None

PATIENT
  Sex: 0

DRUGS (10)
  1. MAGNESIUM CITRATE [Suspect]
     Active Substance: MAGNESIUM CITRATE
     Indication: Constipation
     Dosage: OTHER QUANTITY : 8 FL OZ;?FREQUENCY : DAILY;?
     Route: 048
  2. DAILY MULTIVITAMIN [Concomitant]
  3. CALCIUM [Concomitant]
  4. VITAMIN D3 [Concomitant]
     Active Substance: CHOLECALCIFEROL
  5. IRON [Concomitant]
     Active Substance: IRON
  6. VITAMIN B COMPLEX [Concomitant]
     Active Substance: CYANOCOBALAMIN\DEXPANTHENOL\NIACINAMIDE\PYRIDOXINE HYDROCHLORIDE\RIBOFLAVIN 5^-PHOSPHATE SODIUM\THIA
  7. GINKGO [Concomitant]
     Active Substance: GINKGO
  8. OLEA EUROPAEA LEAF [Concomitant]
     Active Substance: OLEA EUROPAEA LEAF
  9. OREGANO LEAF OIL [Concomitant]
     Active Substance: OREGANO LEAF OIL
  10. BLACK CUMIN SEED OIL [Concomitant]

REACTIONS (4)
  - Abdominal discomfort [None]
  - Abdominal distension [None]
  - Flatulence [None]
  - Nausea [None]

NARRATIVE: CASE EVENT DATE: 20220928
